FAERS Safety Report 20997649 (Version 20)
Quarter: 2022Q4

REPORT INFORMATION
  Report Type: Report from Study
  Country: TR (occurrence: None)
  Receive Date: 20220623
  Receipt Date: 20221229
  Transmission Date: 20230113
  Serious: Yes (Death, Life-Threatening, Hospitalization)
  Sender: FDA-Public Use
  Company Number: TR-Eisai Medical Research-EC-2022-117517

PATIENT
  Age: 72 Year
  Sex: Male
  Weight: 70 kg

DRUGS (5)
  1. LENVATINIB [Suspect]
     Active Substance: LENVATINIB
     Indication: Hepatocellular carcinoma
     Route: 048
     Dates: start: 20220516, end: 20220615
  2. PEMBROLIZUMAB [Suspect]
     Active Substance: PEMBROLIZUMAB
     Indication: Hepatocellular carcinoma
     Dosage: VIBOSTOLIMAB (MK-7684) 200 MG (+) PEMBROLIZUMAB (MK-3475) 200 MG
     Route: 042
     Dates: start: 20220516, end: 20220516
  3. DELTACORTRIL [Concomitant]
     Active Substance: PREDNISOLONE
     Dates: start: 20220606, end: 20220609
  4. METHYLPREDNISOLONE [Concomitant]
     Active Substance: METHYLPREDNISOLONE
     Dates: start: 20220610, end: 20220701
  5. VIBOSTOLIMAB [Suspect]
     Active Substance: VIBOSTOLIMAB

REACTIONS (1)
  - Mesenteric vein thrombosis [Fatal]

NARRATIVE: CASE EVENT DATE: 20220615
